FAERS Safety Report 10692202 (Version 1)
Quarter: 2015Q1

REPORT INFORMATION
  Report Type: Report from Study
  Country: JP (occurrence: JP)
  Receive Date: 20150106
  Receipt Date: 20150106
  Transmission Date: 20150720
  Serious: Yes (Other)
  Sender: FDA-Public Use
  Company Number: JP-JNJFOC-20141219853

PATIENT
  Age: 50 Year
  Sex: Female
  Weight: 43 kg

DRUGS (14)
  1. RIBAVIRIN. [Suspect]
     Active Substance: RIBAVIRIN
     Indication: CHRONIC HEPATITIS C
     Route: 048
     Dates: start: 20141015, end: 20141021
  2. MUCOSTA [Concomitant]
     Active Substance: REBAMIPIDE
     Indication: PROPHYLAXIS
     Route: 048
     Dates: start: 20140919, end: 20140923
  3. DERMOVATE [Concomitant]
     Active Substance: CLOBETASOL
     Indication: PRURITUS
     Route: 061
     Dates: start: 20141001, end: 20141028
  4. PEGASYS [Suspect]
     Active Substance: PEGINTERFERON ALFA-2A
     Indication: CHRONIC HEPATITIS C
     Route: 058
     Dates: start: 20141001, end: 20141015
  5. PEGASYS [Suspect]
     Active Substance: PEGINTERFERON ALFA-2A
     Indication: CHRONIC HEPATITIS C
     Route: 058
     Dates: start: 20140919, end: 20140926
  6. UREPEARL [Concomitant]
     Active Substance: UREA
     Indication: PRURITUS
     Route: 061
     Dates: start: 20140925, end: 20141028
  7. RIBAVIRIN. [Suspect]
     Active Substance: RIBAVIRIN
     Indication: CHRONIC HEPATITIS C
     Route: 048
     Dates: start: 20140919, end: 20141014
  8. CALONAL [Concomitant]
     Active Substance: ACETAMINOPHEN
     Indication: PROPHYLAXIS
     Route: 048
     Dates: start: 20140919, end: 20140923
  9. DERMOVATE [Concomitant]
     Active Substance: CLOBETASOL
     Indication: INJECTION SITE RASH
     Route: 061
     Dates: start: 20141001, end: 20141028
  10. SOVRIAD [Suspect]
     Active Substance: SIMEPREVIR
     Indication: CHRONIC HEPATITIS C
     Route: 048
     Dates: start: 20140919, end: 20141021
  11. LOCOID [Concomitant]
     Active Substance: HYDROCORTISONE BUTYRATE
     Indication: INJECTION SITE RASH
     Route: 061
     Dates: start: 20140925, end: 20141030
  12. MYSLEE [Concomitant]
     Active Substance: ZOLPIDEM TARTRATE
     Indication: INSOMNIA
     Route: 048
  13. UREPEARL [Concomitant]
     Active Substance: UREA
     Indication: INJECTION SITE RASH
     Route: 061
     Dates: start: 20140925, end: 20141028
  14. LOCOID [Concomitant]
     Active Substance: HYDROCORTISONE BUTYRATE
     Indication: PRURITUS
     Route: 061
     Dates: start: 20140925, end: 20141030

REACTIONS (4)
  - Injection site rash [Recovered/Resolved]
  - Pruritus [Recovered/Resolved]
  - Platelet count decreased [Recovering/Resolving]
  - Haemoglobin decreased [Recovered/Resolved]

NARRATIVE: CASE EVENT DATE: 20140925
